FAERS Safety Report 14246354 (Version 1)
Quarter: 2017Q4

REPORT INFORMATION
  Report Type: Spontaneous
  Country: US (occurrence: US)
  Receive Date: 20171204
  Receipt Date: 20171204
  Transmission Date: 20180321
  Serious: Yes (Hospitalization, Other)
  Sender: FDA-Public Use
  Company Number: US-TEVA-2017-US-828792

PATIENT
  Sex: Female

DRUGS (3)
  1. HYDROXYCARBAMIDE [Suspect]
     Active Substance: HYDROXYUREA
     Route: 048
  2. TASIGNA [Suspect]
     Active Substance: NILOTINIB
     Dosage: 1000 MILLIGRAM DAILY;
     Route: 048
  3. GLEEVEC [Suspect]
     Active Substance: IMATINIB MESYLATE
     Route: 048

REACTIONS (5)
  - Asthenia [Unknown]
  - Cardiac failure congestive [Unknown]
  - Wisdom teeth removal [Unknown]
  - Infection [Unknown]
  - Ear pain [Unknown]
